FAERS Safety Report 4353420-8 (Version None)
Quarter: 2004Q2

REPORT INFORMATION
  Report Type: 
  Country: None (occurrence: None)
  Receive Date: 20040504
  Receipt Date: 20040504
  Transmission Date: 20050107
  Serious: Yes (Other)
  Sender: FDA-Public Use
  Company Number: None

PATIENT
  Age: 37 Year
  Sex: Female
  Weight: 85.2762 kg

DRUGS (4)
  1. METRONIDAZOLE [Suspect]
     Indication: TRICHINIASIS
     Dosage: 500 MG ORAL
     Route: 048
     Dates: start: 20040430, end: 20040430
  2. METRONIDAZOLE [Suspect]
     Indication: VAGINITIS
     Dosage: 500 MG ORAL
     Route: 048
     Dates: start: 20040430, end: 20040430
  3. WELLBUTRIN [Concomitant]
  4. PROZAC [Concomitant]

REACTIONS (2)
  - PRURITUS [None]
  - URTICARIA [None]
